FAERS Safety Report 8031000-0 (Version None)
Quarter: 2012Q1

REPORT INFORMATION
  Report Type: 
  Country: None (occurrence: None)
  Receive Date: 20120105
  Receipt Date: 20111221
  Transmission Date: 20120608
  Serious: Yes (Disabling)
  Sender: FDA-Public Use
  Company Number: 1000026566

PATIENT
  Age: 47 Year
  Sex: Male
  Weight: 80 kg

DRUGS (4)
  1. KALETRA [Concomitant]
  2. VIREAD [Concomitant]
  3. LEXOMIL (BROMAZEPAM) [Concomitant]
  4. ESCITALOPRAM OXALATE [Suspect]
     Indication: SUICIDAL IDEATION
     Dosage: 20 MG (20 MG,1 IN 1 D) : 15 MG (15 MG,1 IN 1 D) : 10 MG (10 MG,1 IN 1 D)
     Dates: start: 20090331, end: 20110908

REACTIONS (2)
  - TINNITUS [None]
  - HEARING IMPAIRED [None]
